FAERS Safety Report 8973053 (Version 1)
Quarter: 2012Q4

REPORT INFORMATION
  Report Type: 
  Country: US (occurrence: US)
  Receive Date: 20121218
  Receipt Date: 20121218
  Transmission Date: 20130627
  Serious: No
  Sender: FDA-Public Use
  Company Number: US-BRISTOL-MYERS SQUIBB COMPANY-16976052

PATIENT
  Age: 48 Year
  Sex: Female

DRUGS (3)
  1. ABILIFY [Suspect]
     Indication: MAJOR DEPRESSION
     Dates: start: 201209
  2. PRISTIQ [Suspect]
  3. ADDERALL [Suspect]

REACTIONS (2)
  - Abdominal pain [Unknown]
  - Nausea [Unknown]
